FAERS Safety Report 8067616 (Version 11)
Quarter: 2014Q2

REPORT INFORMATION
  Report Type: Report from Study
  Country: US (occurrence: US)
  Receive Date: 20110803
  Receipt Date: 20140423
  Transmission Date: 20141212
  Serious: Yes (Other)
  Sender: FDA-Public Use
  Company Number: PHHY2011US27417

PATIENT
  Age: 75 Year
  Sex: Male
  Weight: 82.54 kg

DRUGS (10)
  1. TASIGNA [Suspect]
     Indication: CHRONIC MYELOID LEUKAEMIA
     Dosage: 300 MG, BID
     Route: 048
     Dates: start: 20110304
  2. TASIGNA [Suspect]
     Dosage: 300 MG, BID
     Route: 048
  3. TASIGNA [Suspect]
     Dosage: 300 MG, BID
     Route: 048
     Dates: start: 20120201
  4. TASIGNA [Suspect]
     Dosage: 150 MG, QID (2 CAPSULES IN MORNING AND 2 IN EVENING)
  5. LISINOPRIL [Concomitant]
     Dosage: 20 MG, QD
  6. ZOCOR [Concomitant]
     Dosage: 40 MG, QD
     Route: 048
  7. OMEPRAZOL [Concomitant]
     Dosage: 20 MG, UNK
  8. ALLOPURINOL [Concomitant]
  9. SIMVASTATIN [Concomitant]
  10. LUMIGAN [Concomitant]

REACTIONS (28)
  - Penile cancer [Unknown]
  - Second primary malignancy [Unknown]
  - Malignant melanoma [Unknown]
  - Melanocytic naevus [Unknown]
  - Chest pain [Unknown]
  - Electrocardiogram QT prolonged [Recovering/Resolving]
  - Scrotal infection [Not Recovered/Not Resolved]
  - Testicular swelling [Recovered/Resolved]
  - Testicular pain [Unknown]
  - Limb discomfort [Unknown]
  - Rhinorrhoea [Unknown]
  - Scrotal oedema [Unknown]
  - Fatigue [Recovering/Resolving]
  - Decreased appetite [Not Recovered/Not Resolved]
  - Rash [Recovered/Resolved]
  - Cough [Unknown]
  - Pain [Unknown]
  - Blood glucose increased [Unknown]
  - Blood alkaline phosphatase increased [Unknown]
  - Blood bilirubin increased [Unknown]
  - Alopecia [Unknown]
  - Muscle spasms [Unknown]
  - Skin papilloma [Unknown]
  - Pain in extremity [Unknown]
  - Musculoskeletal pain [Unknown]
  - Muscular weakness [Unknown]
  - Arthralgia [Unknown]
  - Back pain [Unknown]
